FAERS Safety Report 4443161-0 (Version None)
Quarter: 2004Q3

REPORT INFORMATION
  Report Type: 
  Country: None (occurrence: None)
  Receive Date: 20040901
  Receipt Date: 20040819
  Transmission Date: 20050211
  Serious: Yes (Other)
  Sender: FDA-Public Use
  Company Number: 2004057886

PATIENT
  Age: 51 Year
  Sex: Female
  Weight: 90.7194 kg

DRUGS (7)
  1. LIPITOR [Suspect]
     Indication: BLOOD CHOLESTEROL INCREASED
     Dosage: 20 MG (20 MG, 1 IN 1 D), ORAL
     Route: 048
     Dates: start: 20000101, end: 20040802
  2. CLOPIDOGREL BISULFATE [Concomitant]
  3. ALBUTEROL [Concomitant]
  4. CROMOLYN SODIUM [Concomitant]
  5. HYDROCHLOROTHIAZIDE [Concomitant]
  6. METOPROLOL SUCCINATE [Concomitant]
  7. ACETYLSALICYLIC ACID [Concomitant]

REACTIONS (11)
  - ACNE [None]
  - ARTHRALGIA [None]
  - BACK PAIN [None]
  - BLADDER SUSPENSION [None]
  - BLOOD CREATINE PHOSPHOKINASE INCREASED [None]
  - CONTUSION [None]
  - CORONARY ARTERY OCCLUSION [None]
  - HYSTERECTOMY [None]
  - MUSCLE CRAMP [None]
  - MYALGIA [None]
  - POLYURIA [None]
